FAERS Safety Report 5917109-3 (Version None)
Quarter: 2008Q4

REPORT INFORMATION
  Report Type: 
  Country: None (occurrence: None)
  Receive Date: 20081014
  Receipt Date: 20081007
  Transmission Date: 20090506
  Serious: Yes (Death)
  Sender: FDA-Public Use
  Company Number: US-ELI_LILLY_AND_COMPANY-US200810001587

PATIENT
  Age: 54 Year
  Sex: Male

DRUGS (3)
  1. CIALIS [Suspect]
     Dosage: 20 MG, UNK
     Dates: start: 20080101
  2. BENICAR [Concomitant]
     Dosage: 40 MG, UNK
     Dates: start: 20080611
  3. SYNTHROID [Concomitant]
     Dosage: 0.05 MG, UNK
     Dates: start: 20080611

REACTIONS (2)
  - ARRHYTHMIA [None]
  - CARDIAC ARREST [None]
